FAERS Safety Report 4437173-0 (Version None)
Quarter: 2004Q3

REPORT INFORMATION
  Report Type: 
  Country: None (occurrence: None)
  Receive Date: 20040827
  Receipt Date: 20040816
  Transmission Date: 20050211
  Serious: Yes (Hospitalization)
  Sender: FDA-Public Use
  Company Number: 2004224943US

PATIENT
  Age: 60 Year
  Sex: Female
  Weight: 92.6 kg

DRUGS (16)
  1. CAMPTOSAR [Suspect]
     Indication: GLIOBLASTOMA
     Dosage: 816 MG, CYCLIC, IV
     Route: 042
     Dates: start: 20040603
  2. CLINICAL TRIAL PROCEDURE (CLINICAL TRIAL PROCEDURE) [Suspect]
     Indication: GLIOBLASTOMA
     Dosage: 6000 CGY, CYCLIC
     Dates: start: 20040603, end: 20040715
  3. DECADRON [Concomitant]
  4. PANTOPRAZOLE [Concomitant]
  5. MICRO-K [Concomitant]
  6. DILANTIN [Concomitant]
  7. ZOFRAN [Concomitant]
  8. VICODIN [Concomitant]
  9. LEVOTHROID [Concomitant]
  10. LIPITOR [Concomitant]
  11. VERAPAMIL [Concomitant]
  12. TRIAMTERENE AND HYDROCHLOROTHIAZIDE [Concomitant]
  13. CALTRATE [Concomitant]
  14. TUMS (MAGNESIUM CARBONATE, MAGNESIUM TRISILICATE) [Concomitant]
  15. CENTRUM SILVER (VITAMIN B NOS, VITAMINS NOS, RETINOL) [Concomitant]
  16. COMPAZINE [Concomitant]

REACTIONS (6)
  - BLOOD CALCIUM DECREASED [None]
  - BLOOD GLUCOSE INCREASED [None]
  - BLOOD POTASSIUM DECREASED [None]
  - CONVULSION [None]
  - GLIOBLASTOMA MULTIFORME [None]
  - MALIGNANT NEOPLASM PROGRESSION [None]
